FAERS Safety Report 10188597 (Version 1)
Quarter: 2014Q2

REPORT INFORMATION
  Report Type: Spontaneous
  Country: US (occurrence: US)
  Receive Date: 20140522
  Receipt Date: 20140522
  Transmission Date: 20141212
  Serious: No
  Sender: FDA-Public Use
  Company Number: US-SA-2014SA034001

PATIENT
  Sex: 0

DRUGS (1)
  1. LANTUS [Suspect]
     Indication: DIABETES MELLITUS
     Route: 058
     Dates: start: 2012

REACTIONS (4)
  - Glycosylated haemoglobin increased [Unknown]
  - Asthenia [Unknown]
  - Feeling abnormal [Unknown]
  - Feeling abnormal [Unknown]
